FAERS Safety Report 13054230 (Version 1)
Quarter: 2016Q4

REPORT INFORMATION
  Report Type: Spontaneous
  Country: JP (occurrence: JP)
  Receive Date: 20161222
  Receipt Date: 20161222
  Transmission Date: 20170207
  Serious: Yes (Hospitalization, Other)
  Sender: FDA-Public Use
  Company Number: JP-ELI_LILLY_AND_COMPANY-JP201611008087

PATIENT
  Age: 64 Year
  Sex: Female
  Weight: 46 kg

DRUGS (8)
  1. PRASUGREL HYDROCHLORIDE [Suspect]
     Active Substance: PRASUGREL HYDROCHLORIDE
     Indication: MYOCARDIAL ISCHAEMIA
     Dosage: 3.75 MG, QD
     Route: 048
     Dates: start: 20150327, end: 20161115
  2. TRESIBA [Concomitant]
     Active Substance: INSULIN DEGLUDEC
     Indication: DIABETES MELLITUS
     Dosage: 16 IU, UNKNOWN
     Route: 058
  3. BAYASPIRIN [Suspect]
     Active Substance: ASPIRIN
     Indication: MYOCARDIAL ISCHAEMIA
     Dosage: 100 MG, QD
     Route: 048
     Dates: start: 20150327, end: 20161115
  4. CALONAL [Concomitant]
     Active Substance: ACETAMINOPHEN
     Dosage: 400 MG, QD
     Route: 048
  5. BAYASPIRIN [Suspect]
     Active Substance: ASPIRIN
     Indication: PERCUTANEOUS CORONARY INTERVENTION
     Dosage: 100 MG, QD
     Route: 065
     Dates: start: 20161116
  6. HEPARIN [Suspect]
     Active Substance: HEPARIN SODIUM
     Indication: PRODUCT USED FOR UNKNOWN INDICATION
     Dosage: UNK UNK, UNKNOWN
     Route: 065
  7. PRASUGREL HYDROCHLORIDE [Suspect]
     Active Substance: PRASUGREL HYDROCHLORIDE
     Indication: PERCUTANEOUS CORONARY INTERVENTION
     Dosage: UNK
  8. TAKEPRON [Concomitant]
     Active Substance: LANSOPRAZOLE
     Indication: PROPHYLAXIS AGAINST GASTROINTESTINAL ULCER
     Dosage: 15 MG, QD
     Route: 048
     Dates: end: 20161115

REACTIONS (3)
  - Putamen haemorrhage [Recovered/Resolved with Sequelae]
  - Blood pressure increased [Recovered/Resolved]
  - Hemiplegia [Recovered/Resolved with Sequelae]

NARRATIVE: CASE EVENT DATE: 20161115
